FAERS Safety Report 12729642 (Version 3)
Quarter: 2017Q2

REPORT INFORMATION
  Report Type: Report from Study
  Country: TR (occurrence: TR)
  Receive Date: 20160909
  Receipt Date: 20170419
  Transmission Date: 20170830
  Serious: Yes (Death, Life-Threatening, Hospitalization)
  Sender: FDA-Public Use
  Company Number: TR-AMGEN-TURSP2016105878

PATIENT
  Sex: Female
  Weight: 17 kg

DRUGS (10)
  1. CLINDAMYCIN. [Concomitant]
     Active Substance: CLINDAMYCIN
     Indication: COLITIS
     Dosage: 170 MG, TID
     Route: 042
     Dates: start: 20160727, end: 20160801
  2. BLINATUMOMAB [Suspect]
     Active Substance: BLINATUMOMAB
     Dosage: 7 UNK, QD
     Route: 042
     Dates: start: 20160726
  3. DEXAMETHAZON [Suspect]
     Active Substance: DEXAMETHASONE
     Indication: CHEMOTHERAPY
     Dosage: 1 MG, TID
     Route: 065
     Dates: start: 20160518, end: 20160806
  4. TARGOCID [Concomitant]
     Active Substance: TEICOPLANIN
     Indication: FEBRILE NEUTROPENIA
     Dosage: 170 MG, QD
     Route: 042
     Dates: start: 20160721, end: 20160806
  5. BLINATUMOMAB [Suspect]
     Active Substance: BLINATUMOMAB
     Indication: B PRECURSOR TYPE ACUTE LEUKAEMIA
     Dosage: 5 MUG, QD
     Route: 042
     Dates: start: 20160720
  6. BLINATUMOMAB [Suspect]
     Active Substance: BLINATUMOMAB
     Dosage: 15 MUG, QD
     Route: 042
     Dates: start: 20160727, end: 20160729
  7. AMPHOTERICIN B, LIPOSOME [Concomitant]
     Active Substance: AMPHOTERICIN B
     Indication: FEBRILE NEUTROPENIA
     Dosage: 50 MG, QD
     Route: 042
     Dates: start: 20160626, end: 20160806
  8. AMPHOTERICIN B, LIPOSOME [Concomitant]
     Active Substance: AMPHOTERICIN B
     Indication: OESOPHAGITIS
  9. ACICLOVIR [Concomitant]
     Active Substance: ACYCLOVIR
     Indication: PROPHYLAXIS
     Dosage: 100 MG, QID
     Route: 048
     Dates: start: 20160626, end: 20160728
  10. MERONEM [Concomitant]
     Active Substance: MEROPENEM
     Indication: FEBRILE NEUTROPENIA
     Dosage: 640 MG, TID
     Route: 042
     Dates: start: 20160720, end: 20160806

REACTIONS (3)
  - Metabolic acidosis [Recovered/Resolved]
  - Pancreatitis acute [Recovering/Resolving]
  - Pneumonia [Fatal]

NARRATIVE: CASE EVENT DATE: 20160726
